FAERS Safety Report 11444930 (Version 3)
Quarter: 2015Q4

REPORT INFORMATION
  Report Type: Report from Study
  Country: US (occurrence: US)
  Receive Date: 20150902
  Receipt Date: 20151228
  Transmission Date: 20160304
  Serious: Yes (Hospitalization, Other)
  Sender: FDA-Public Use
  Company Number: PHEH2015US005336

PATIENT
  Age: 10 Year
  Sex: Male
  Weight: 32.3 kg

DRUGS (12)
  1. TOBI [Suspect]
     Active Substance: TOBRAMYCIN
     Indication: COUGH
     Dosage: UNK, 28 DAY COURSE
     Route: 055
  2. PROVENTIL HFA//SALBUTAMOL [Concomitant]
     Indication: WHEEZING
     Dosage: 2 DF, BID (2 PUFFS WITH SPACER TWICE A DAY BEFORE HYPERSL AND EVERY 3-4 HOURS AS NEEDED FOR COUGH)
     Route: 055
     Dates: start: 20140714
  3. MEPHYTON [Concomitant]
     Active Substance: PHYTONADIONE
     Indication: PRODUCT USED FOR UNKNOWN INDICATION
     Dosage: 2 DF, QD
     Route: 048
     Dates: start: 20140908
  4. PEDIASURE [Concomitant]
     Active Substance: VITAMINS
     Indication: PRODUCT USED FOR UNKNOWN INDICATION
     Dosage: 237 ML, BID
     Route: 048
     Dates: start: 20150115
  5. TOBI PODHALER [Suspect]
     Active Substance: TOBRAMYCIN
     Indication: CYSTIC FIBROSIS LUNG
     Dosage: 112 MG, BID (4 CAPSULES TWICE A DAY)
     Route: 055
     Dates: start: 20130806
  6. PROVENTIL HFA//SALBUTAMOL [Concomitant]
     Indication: DYSPNOEA
  7. TOBI [Suspect]
     Active Substance: TOBRAMYCIN
     Indication: SPUTUM INCREASED
  8. PROVENTIL HFA//SALBUTAMOL [Concomitant]
     Indication: COUGH
  9. VITAMIN K [Concomitant]
     Active Substance: PHYTONADIONE
     Indication: PRODUCT USED FOR UNKNOWN INDICATION
     Dosage: UNK
     Route: 065
  10. TOBI [Suspect]
     Active Substance: TOBRAMYCIN
     Indication: RESPIRATORY TRACT CONGESTION
  11. PREVACID [Concomitant]
     Active Substance: LANSOPRAZOLE
     Indication: PRODUCT USED FOR UNKNOWN INDICATION
     Dosage: UNK
     Route: 065
  12. TOBI PODHALER [Suspect]
     Active Substance: TOBRAMYCIN
     Dosage: 112 MG, BID
     Route: 055
     Dates: end: 201507

REACTIONS (13)
  - Decreased appetite [Recovering/Resolving]
  - Weight decreased [Unknown]
  - Condition aggravated [Recovered/Resolved]
  - Forced expiratory volume decreased [Unknown]
  - Cystic fibrosis [Recovered/Resolved]
  - Condition aggravated [Recovered/Resolved]
  - Obstructive airways disorder [Unknown]
  - Cough [Recovered/Resolved]
  - Cystic fibrosis [Recovered/Resolved]
  - Pulmonary function test decreased [Recovering/Resolving]
  - Infective pulmonary exacerbation of cystic fibrosis [Recovered/Resolved]
  - Product use issue [Unknown]
  - Sputum discoloured [Recovering/Resolving]

NARRATIVE: CASE EVENT DATE: 20140820
